FAERS Safety Report 18605321 (Version 1)
Quarter: 2020Q4

REPORT INFORMATION
  Report Type: Spontaneous
  Country: US (occurrence: US)
  Receive Date: 20201211
  Receipt Date: 20201211
  Transmission Date: 20210114
  Serious: Yes (Hospitalization, Other)
  Sender: FDA-Public Use
  Company Number: US-CATALENT PHARMA SOLUTIONS-CAT-000311-2020

PATIENT
  Age: 11 Year
  Sex: Male
  Weight: 28.9 kg

DRUGS (2)
  1. VALPROIC ACID. [Suspect]
     Active Substance: VALPROIC ACID
     Indication: SEIZURE
     Dosage: 31 MILLIGRAM/KILOGRAM PER DAY
     Route: 065
  2. LACOSAMIDE. [Concomitant]
     Active Substance: LACOSAMIDE
     Indication: SEIZURE
     Dosage: 7 MILLIGRAM/KILOGRAM PER DAY
     Route: 065

REACTIONS (4)
  - Hyperammonaemia [Recovered/Resolved]
  - Anticonvulsant drug level above therapeutic [Recovered/Resolved]
  - Myelosuppression [Recovered/Resolved]
  - Pancytopenia [Recovered/Resolved]
